FAERS Safety Report 6896983-0 (Version None)
Quarter: 2010Q3

REPORT INFORMATION
  Report Type: 
  Country: None (occurrence: None)
  Receive Date: 20100802
  Receipt Date: 20070309
  Transmission Date: 20110219
  Serious: No
  Sender: FDA-Public Use
  Company Number: US-PFIZER INC-2007018364

PATIENT
  Sex: Female
  Weight: 40.8 kg

DRUGS (10)
  1. LYRICA [Suspect]
     Indication: NEUROPATHY PERIPHERAL
     Dosage: 1 EVERY 3 DAYS
     Dates: start: 20070201
  2. NEXIUM [Concomitant]
  3. CYMBALTA [Concomitant]
  4. SYNTHROID [Concomitant]
  5. VYTORIN [Concomitant]
  6. ACETYLSALICYLIC ACID SRT [Concomitant]
  7. PULMICORT [Concomitant]
  8. OXYCODONE [Concomitant]
  9. OXYGEN [Concomitant]
  10. TOPAMAX [Concomitant]

REACTIONS (1)
  - PAIN [None]
